FAERS Safety Report 14524913 (Version 1)
Quarter: 2018Q1

REPORT INFORMATION
  Report Type: Spontaneous
  Country: US (occurrence: US)
  Receive Date: 20180213
  Receipt Date: 20180213
  Transmission Date: 20180509
  Serious: No
  Sender: FDA-Public Use
  Company Number: US-009507513-1801USA010541

PATIENT
  Sex: Male

DRUGS (7)
  1. ACETAMINOPHEN. [Suspect]
     Active Substance: ACETAMINOPHEN
  2. CARVEDILOL. [Suspect]
     Active Substance: CARVEDILOL
  3. METOPROLOL. [Suspect]
     Active Substance: METOPROLOL
  4. SIMVASTATIN TABLETS, USP [Suspect]
     Active Substance: SIMVASTATIN
  5. LOSARTAN POTASSIUM TABLETS [Suspect]
     Active Substance: LOSARTAN POTASSIUM
  6. TRAMADOL HYDROCHLORIDE. [Suspect]
     Active Substance: TRAMADOL HYDROCHLORIDE
  7. CODEINE [Suspect]
     Active Substance: CODEINE

REACTIONS (1)
  - Adverse event [Unknown]
